FAERS Safety Report 7298404-5 (Version None)
Quarter: 2011Q1

REPORT INFORMATION
  Report Type: 
  Country: None (occurrence: None)
  Receive Date: 20110217
  Receipt Date: 20110208
  Transmission Date: 20110831
  Serious: Yes (Hospitalization)
  Sender: FDA-Public Use
  Company Number: JP-B.I. PHARMACEUTICALS,INC./RIDGEFIELD-2011-BP-00909NB

PATIENT
  Sex: Female

DRUGS (5)
  1. MAGLAX [Concomitant]
     Indication: CONSTIPATION
     Dosage: 1500 MG
     Route: 048
     Dates: start: 20100913
  2. BI-SIFROL TABLETS [Suspect]
     Indication: PARKINSON'S DISEASE
     Dosage: 0.25 MG
     Route: 048
     Dates: start: 20100803, end: 20100912
  3. BI-SIFROL TABLETS [Suspect]
     Dosage: 0.125 MG
     Route: 048
     Dates: start: 20101101, end: 20110114
  4. PURSENNID [Suspect]
     Indication: CONSTIPATION
     Dosage: 24 MG
     Route: 048
     Dates: start: 20100628
  5. BI-SIFROL TABLETS [Suspect]
     Dosage: 0.375 MG
     Route: 048
     Dates: start: 20100913, end: 20101001

REACTIONS (2)
  - DEHYDRATION [None]
  - ALOPECIA [None]
